FAERS Safety Report 21843855 (Version 2)
Quarter: 2023Q4

REPORT INFORMATION
  Report Type: Report from Study
  Country: US (occurrence: US)
  Receive Date: 20230110
  Receipt Date: 20231024
  Transmission Date: 20240110
  Serious: No
  Sender: FDA-Public Use
  Company Number: US-IDORSIA-002886-2023-US

PATIENT
  Sex: Female

DRUGS (1)
  1. QUVIVIQ [Suspect]
     Active Substance: DARIDOREXANT
     Indication: Insomnia
     Dosage: 50 MG, QD AT NIGHT
     Route: 048
     Dates: start: 20221217

REACTIONS (4)
  - Drug intolerance [Unknown]
  - Nightmare [Unknown]
  - Sleep paralysis [Unknown]
  - Therapeutic product effect incomplete [Unknown]
